FAERS Safety Report 4352686-8 (Version None)
Quarter: 2004Q2

REPORT INFORMATION
  Report Type: 
  Country: None (occurrence: None)
  Receive Date: 20040429
  Receipt Date: 20040416
  Transmission Date: 20050107
  Serious: Yes (Hospitalization)
  Sender: FDA-Public Use
  Company Number: 2003-BP-10489BP

PATIENT
  Age: 58 Year
  Sex: Male

DRUGS (8)
  1. MICARDIS [Suspect]
     Indication: CEREBROVASCULAR ACCIDENT
     Route: 048
     Dates: start: 20030429, end: 20030918
  2. MICARDIS [Suspect]
     Indication: MYOCARDIAL INFARCTION
     Route: 048
     Dates: start: 20030429, end: 20030918
  3. MICARDIS [Suspect]
     Indication: PROPHYLAXIS
     Route: 048
     Dates: start: 20030429, end: 20030918
  4. RAMIPRIL [Suspect]
     Indication: CEREBROVASCULAR ACCIDENT
     Route: 048
     Dates: start: 20030429, end: 20030918
  5. RAMIPRIL [Suspect]
     Indication: MYOCARDIAL INFARCTION
     Route: 048
     Dates: start: 20030429, end: 20030918
  6. RAMIPRIL [Suspect]
     Indication: PROPHYLAXIS
     Route: 048
     Dates: start: 20030429, end: 20030918
  7. ACETYLSALICYLIC ACID SRT [Concomitant]
  8. EMCONCOR [Concomitant]

REACTIONS (1)
  - RENAL FAILURE ACUTE [None]
